FAERS Safety Report 20062747 (Version 1)
Quarter: 2021Q4

REPORT INFORMATION
  Report Type: Report from Study
  Country: HN (occurrence: HN)
  Receive Date: 20211112
  Receipt Date: 20211112
  Transmission Date: 20220303
  Serious: Yes (Other)
  Sender: FDA-Public Use
  Company Number: HN-NOVARTISPH-NVSC2021HN256593

PATIENT
  Age: 73 Year
  Sex: Female

DRUGS (2)
  1. METFORMIN HYDROCHLORIDE\VILDAGLIPTIN [Suspect]
     Active Substance: METFORMIN HYDROCHLORIDE\VILDAGLIPTIN
     Indication: Product used for unknown indication
     Dosage: 900 MG (50/850 MG) (STOPPED: APPROXIMATELY A MONTH AGO)
     Route: 065
     Dates: start: 202102
  2. METFORMIN HYDROCHLORIDE\VILDAGLIPTIN [Suspect]
     Active Substance: METFORMIN HYDROCHLORIDE\VILDAGLIPTIN
     Dosage: 1050 MG (50/1000 MG) (STARTED: APPROXIMATELY A MONTH AGO)
     Route: 065

REACTIONS (4)
  - Brain stem stroke [Unknown]
  - Gait inability [Unknown]
  - General physical health deterioration [Unknown]
  - Drug ineffective [Unknown]
